FAERS Safety Report 23165602 (Version 1)
Quarter: 2023Q4

REPORT INFORMATION
  Report Type: Spontaneous
  Country: US (occurrence: US)
  Receive Date: 20231109
  Receipt Date: 20231109
  Transmission Date: 20240110
  Serious: No
  Sender: FDA-Public Use
  Company Number: US-ANIPHARMA-2023-US-030843

PATIENT
  Age: 40 Year
  Sex: Female

DRUGS (2)
  1. CORTICOTROPIN [Suspect]
     Active Substance: CORTICOTROPIN
     Indication: Idiopathic orbital inflammation
     Dosage: INJECT SQ 40 UNITS, THEN 80 UNITS Q 2 WEEKS
     Route: 058
     Dates: start: 20230908
  2. PREDNISONE [Suspect]
     Active Substance: PREDNISONE
     Indication: Product used for unknown indication
     Dosage: 10 MG ONCE DAILY / INCREASED TO 40 MG

REACTIONS (1)
  - Drug ineffective [Not Recovered/Not Resolved]
